FAERS Safety Report 7145884-1 (Version None)
Quarter: 2010Q4

REPORT INFORMATION
  Report Type: 
  Country: None (occurrence: None)
  Receive Date: 20101208
  Receipt Date: 20101124
  Transmission Date: 20110411
  Serious: Yes (Other)
  Sender: FDA-Public Use
  Company Number: B0687912A

PATIENT
  Age: 78 Year
  Sex: Male

DRUGS (1)
  1. CARVEDILOL [Suspect]
     Dates: start: 20090601, end: 20090801

REACTIONS (1)
  - LIVER DISORDER [None]
